FAERS Safety Report 6703814-8 (Version None)
Quarter: 2010Q2

REPORT INFORMATION
  Report Type: 
  Country: None (occurrence: None)
  Receive Date: 20100430
  Receipt Date: 20100421
  Transmission Date: 20101027
  Serious: Yes (Other)
  Sender: FDA-Public Use
  Company Number: JP-PFIZER INC-2010050455

PATIENT
  Age: 36 Year
  Sex: Male
  Weight: 83 kg

DRUGS (4)
  1. ADRIAMYCIN PFS [Suspect]
     Indication: LYMPHOMA
     Dosage: 25 MG/M2, 30-MINUTE INFUSION
     Route: 041
  2. BLEOMYCIN [Suspect]
     Indication: LYMPHOMA
     Dosage: 9 MG/M2, BY 30-MINUTE INFUSION
     Route: 041
  3. DACARBAZINE [Suspect]
     Indication: LYMPHOMA
     Dosage: 375 MG/M2, 2-HOUR INFUSION
     Route: 041
  4. VINBLASTINE [Suspect]
     Indication: LYMPHOMA
     Dosage: 6 MG/M2, UNK
     Route: 040

REACTIONS (2)
  - CYTOKINE RELEASE SYNDROME [None]
  - TUMOUR LYSIS SYNDROME [None]
